FAERS Safety Report 8355471-5 (Version None)
Quarter: 2012Q2

REPORT INFORMATION
  Report Type: 
  Country: None (occurrence: None)
  Receive Date: 20120512
  Receipt Date: 20120501
  Transmission Date: 20120825
  Serious: Yes (Hospitalization, Other)
  Sender: FDA-Public Use
  Company Number: US-ELI_LILLY_AND_COMPANY-US201201008101

PATIENT
  Sex: Female
  Weight: 48 kg

DRUGS (7)
  1. PREDNISONE TAB [Concomitant]
     Dosage: 5 MG, UNKNOWN
     Route: 065
  2. NORVASC [Concomitant]
     Dosage: UNK, UNKNOWN
     Route: 065
  3. ANALGESICS [Concomitant]
     Indication: PAIN
     Dosage: UNK, UNKNOWN
     Route: 065
  4. FORTEO [Suspect]
     Dosage: 20 UG, QD
     Route: 065
     Dates: start: 20120201
  5. FORTEO [Suspect]
     Dosage: 20 UG, QD
     Route: 065
     Dates: start: 20120201
  6. FORTEO [Suspect]
     Indication: OSTEOPOROSIS
     Dosage: 20 UG, QD
     Route: 065
  7. PLAQUENIL [Concomitant]
     Dosage: UNK, UNKNOWN
     Route: 065

REACTIONS (8)
  - INFLUENZA LIKE ILLNESS [None]
  - PAIN [None]
  - PELVIC FRACTURE [None]
  - FALL [None]
  - ASTHENIA [None]
  - PARALYSIS [None]
  - SPINAL FRACTURE [None]
  - INJECTION SITE HAEMATOMA [None]
